FAERS Safety Report 5010993-X (Version None)
Quarter: 2006Q2

REPORT INFORMATION
  Report Type: 
  Country: None (occurrence: None)
  Receive Date: 20060523
  Receipt Date: 20060523
  Transmission Date: 20061013
  Serious: Yes (Life-Threatening)
  Sender: FDA-Public Use
  Company Number: None

PATIENT
  Sex: Female
  Weight: 53.5244 kg

DRUGS (9)
  1. MORPHINE [Suspect]
     Indication: ADHESIOLYSIS
     Dosage: 2-4 MG Q2H PRN IV BOLUS
     Route: 040
     Dates: start: 20060103, end: 20060105
  2. DICLOFENAC SODIUM [Concomitant]
  3. FAMOTIDINE [Concomitant]
  4. GATIFLOXACIN [Concomitant]
  5. DEXTROSE 5% [Concomitant]
  6. HEPARIN [Concomitant]
  7. METOPROLOL [Concomitant]
  8. POTASSIUM CHLORIDE [Concomitant]
  9. PROMETHAZINE [Concomitant]

REACTIONS (5)
  - MULTIPLE SCLEROSIS [None]
  - NAUSEA [None]
  - PAROTID GLAND ENLARGEMENT [None]
  - REACTION TO PRESERVATIVES [None]
  - SUBMAXILLARY GLAND ENLARGEMENT [None]
